FAERS Safety Report 17367260 (Version 1)
Quarter: 2020Q1

REPORT INFORMATION
  Report Type: Report from Study
  Country: IT (occurrence: IT)
  Receive Date: 20200204
  Receipt Date: 20200204
  Transmission Date: 20200409
  Serious: Yes (Hospitalization)
  Sender: FDA-Public Use
  Company Number: IT-MYLANLABS-2020M1011927

PATIENT
  Age: 67 Year
  Sex: Female

DRUGS (1)
  1. CILOSTAZOL. [Suspect]
     Active Substance: CILOSTAZOL
     Indication: INTERMITTENT CLAUDICATION
     Dosage: 1 DOSAGE FORM, QD
     Route: 048
     Dates: start: 20191024, end: 20191103

REACTIONS (2)
  - Metabolic acidosis [Recovering/Resolving]
  - Thrombocytopenia [Recovering/Resolving]

NARRATIVE: CASE EVENT DATE: 20191103
